FAERS Safety Report 23441729 (Version 1)
Quarter: 2024Q1

REPORT INFORMATION
  Report Type: Spontaneous
  Country: US (occurrence: US)
  Receive Date: 20240125
  Receipt Date: 20240125
  Transmission Date: 20240410
  Serious: No
  Sender: FDA-Public Use
  Company Number: US-AUROBINDO-AUR-APL-2023-047713

PATIENT
  Age: 32 Year
  Sex: Female
  Weight: 66.7 kg

DRUGS (2)
  1. PROGESTERONE [Suspect]
     Active Substance: PROGESTERONE
     Indication: Infertility
     Dosage: 2 MILLILITER, DAILY (2ML INTRA MUSCULAR EVERY NIGHT)
     Route: 030
     Dates: start: 20230524
  2. PROGESTERONE [Concomitant]
     Active Substance: PROGESTERONE
     Indication: Product used for unknown indication
     Dosage: UNK
     Route: 065

REACTIONS (1)
  - Skin reaction [Recovered/Resolved]
